FAERS Safety Report 24863285 (Version 2)
Quarter: 2025Q1

REPORT INFORMATION
  Report Type: Spontaneous
  Country: US (occurrence: US)
  Receive Date: 20250120
  Receipt Date: 20250210
  Transmission Date: 20250408
  Serious: No
  Sender: SANOFI AVENTIS
  Company Number: US-SA-2025SA016891

PATIENT
  Age: 36 Year
  Sex: Female

DRUGS (1)
  1. DUPIXENT [Suspect]
     Active Substance: DUPILUMAB
     Indication: Dermatitis atopic
     Dosage: 300 MG, QOW
     Route: 058
     Dates: start: 202410

REACTIONS (2)
  - Rash [Not Recovered/Not Resolved]
  - Conjunctivitis [Not Recovered/Not Resolved]

NARRATIVE: CASE EVENT DATE: 20250124
